FAERS Safety Report 16958830 (Version 1)
Quarter: 2019Q4

REPORT INFORMATION
  Report Type: Spontaneous
  Country: US (occurrence: US)
  Receive Date: 20191024
  Receipt Date: 20191024
  Transmission Date: 20200122
  Serious: Yes (Other)
  Sender: FDA-Public Use
  Company Number: US-TEVA-2019-US-1125702

PATIENT
  Age: 4 Year
  Sex: Male

DRUGS (1)
  1. VINCASAR PFS [Suspect]
     Active Substance: VINCRISTINE SULFATE
     Indication: ACUTE LYMPHOCYTIC LEUKAEMIA
     Dosage: FORM STRENGTH: 1 MG/ML, 1 MG.
     Route: 065

REACTIONS (4)
  - Alopecia [Unknown]
  - Paraesthesia [Unknown]
  - Sedation [Unknown]
  - Neuropathy peripheral [Unknown]
